FAERS Safety Report 19395751 (Version 1)
Quarter: 2021Q2

REPORT INFORMATION
  Report Type: Report from Study
  Country: US (occurrence: US)
  Receive Date: 20210609
  Receipt Date: 20210609
  Transmission Date: 20210717
  Serious: Yes (Other)
  Sender: FDA-Public Use
  Company Number: US-GLAXOSMITHKLINE-USCH2021GSK034992

PATIENT
  Age: 63 Year
  Sex: Female
  Weight: 57.3 kg

DRUGS (34)
  1. AMLODIPINE [Concomitant]
     Active Substance: AMLODIPINE BESYLATE
     Indication: HYPERTENSION
     Dosage: UNK
     Dates: start: 2021
  2. TRAMADOL. [Concomitant]
     Active Substance: TRAMADOL
     Indication: PAIN
     Dosage: 10 MG, ONCE EVERY 24 HOURS
  3. PF?06801591 [Suspect]
     Active Substance: SASANLIMAB
     Indication: NON-SMALL CELL LUNG CANCER
     Dosage: 300 MG, ONCE EVERY 4 WEEKS
     Route: 058
     Dates: start: 20210408, end: 20210408
  4. VALSARTAN. [Concomitant]
     Active Substance: VALSARTAN
     Indication: CARDIOMEGALY
  5. CALCIUM PANTOTHENATE [Concomitant]
     Active Substance: CALCIUM PANTOTHENATE
     Indication: PROPHYLAXIS
     Dosage: ONCE EVERY 24 HOURS,
     Route: 048
     Dates: start: 20210429
  6. SODIUM SELENATE [Concomitant]
     Active Substance: SODIUM SELENATE
     Indication: PROPHYLAXIS
     Dosage: UNK
     Route: 048
     Dates: start: 20210429
  7. DE?NOL [Concomitant]
     Indication: PROPHYLAXIS
     Dosage: UNK
     Dates: start: 2021
  8. FUROSEMIDE. [Concomitant]
     Active Substance: FUROSEMIDE
     Indication: PERIPHERAL SWELLING
     Dosage: 20 MG, BID
  9. CHROMIC CHLORIDE. [Concomitant]
     Active Substance: CHROMIC CHLORIDE
     Indication: PROPHYLAXIS
     Dosage: ONCE EVERY 24 HOURS,
     Route: 048
     Dates: start: 20210429
  10. COPPER SULFATE [Concomitant]
     Active Substance: CUPRIC SULFATE ANHYDROUS
     Indication: PROPHYLAXIS
     Dosage: ONCE EVERY 24 HOURS,
     Route: 048
     Dates: start: 20210429
  11. CYANOCOBALAMIN. [Concomitant]
     Active Substance: CYANOCOBALAMIN
     Indication: PROPHYLAXIS
     Dosage: ONCE EVERY 24 HOURS,
     Route: 048
     Dates: start: 20210429
  12. PYRIDOXINE HYDROCHLORIDE. [Concomitant]
     Active Substance: PYRIDOXINE HYDROCHLORIDE
     Indication: PROPHYLAXIS
     Dosage: ONCE EVERY 24 HOURS
     Route: 048
     Dates: start: 20210429
  13. TOCOPHERYL ACETATE [Concomitant]
     Active Substance: .ALPHA.-TOCOPHEROL ACETATE
     Indication: PROPHYLAXIS
     Dosage: ONCE EVERY 24 HOURS
     Route: 048
     Dates: start: 20210429
  14. INDAPAMIDE. [Concomitant]
     Active Substance: INDAPAMIDE
     Indication: CARDIOMEGALY
  15. ASCORBIC ACID. [Concomitant]
     Active Substance: ASCORBIC ACID
     Indication: PROPHYLAXIS
     Dosage: ONCE EVERY 24 HOURS
     Route: 048
     Dates: start: 20210429
  16. BIOTIN [Concomitant]
     Active Substance: BIOTIN
     Indication: PROPHYLAXIS
     Dosage: ONCE EVERY 24 HOURS
     Route: 048
     Dates: start: 20210429
  17. NICOTINAMIDE [Concomitant]
     Active Substance: NIACINAMIDE
     Indication: PROPHYLAXIS
     Dosage: ONCE EVERY 24 HOURS
     Dates: start: 20210429
  18. POTASSIUM IODIDE. [Concomitant]
     Active Substance: POTASSIUM IODIDE
     Indication: PROPHYLAXIS
     Dosage: ONCE EVERY 24 HOURS
     Route: 048
     Dates: start: 20210429
  19. RIBOFLAVIN [Concomitant]
     Active Substance: RIBOFLAVIN
     Indication: PROPHYLAXIS
     Dosage: ONCE EVERY 24 HOURS
     Route: 048
     Dates: start: 20210429
  20. XANTOFYL [Concomitant]
     Active Substance: LUTEIN
     Indication: PROPHYLAXIS
     Dosage: ONCE EVERY 24 HOURS
     Route: 048
     Dates: start: 20210429
  21. THERAFLU NOS [Suspect]
     Active Substance: ACETAMINOPHEN AND OR DEXTROMETHORPHAN AND OR DIPHENHYDRAMINE AND OR GUAIFENESIN AND OR PHENYLEPHRINE AND OR PSEUDOEPHEDRINE
     Indication: PRODUCT USED FOR UNKNOWN INDICATION
  22. COLECALCIFEROL [Concomitant]
     Active Substance: CHOLECALCIFEROL
     Indication: PROPHYLAXIS
     Dosage: ONCE EVERY 24 HOURS
     Dates: start: 20210429
  23. FOLIC ACID. [Concomitant]
     Active Substance: FOLIC ACID
     Indication: PROPHYLAXIS
     Dosage: ONCE EVERY 24 HOURS
     Route: 048
     Dates: start: 20210429
  24. MAGNESIUM OXIDE. [Concomitant]
     Active Substance: MAGNESIUM OXIDE
     Indication: PROPHYLAXIS
     Dosage: ONCE EVERY 24 HOURS
     Route: 048
     Dates: start: 20210429
  25. PHOSPHORUS [Concomitant]
     Active Substance: PHOSPHORUS
     Indication: PROPHYLAXIS
     Dosage: ONCE EVERY 24 HOURS
     Route: 048
     Dates: start: 20210429
  26. THIAMINE MONONITRATE [Concomitant]
     Active Substance: THIAMINE MONONITRATE
     Indication: PROPHYLAXIS
     Dosage: UNK
     Route: 048
     Dates: start: 20210429
  27. AMLODIPINE [Concomitant]
     Active Substance: AMLODIPINE BESYLATE
     Indication: CARDIOMEGALY
  28. SODIUM MOLYBDATE. [Concomitant]
     Active Substance: SODIUM MOLYBDATE
     Indication: PROPHYLAXIS
     Dosage: ONCE EVERY 24 HOURS
     Route: 048
     Dates: start: 20210429
  29. VALSARTAN. [Concomitant]
     Active Substance: VALSARTAN
     Indication: HYPERTENSION
     Dosage: UNK
     Dates: start: 2021
  30. CALCIUM [Concomitant]
     Active Substance: CALCIUM
     Indication: PROPHYLAXIS
     Dosage: ONCE EVERY 24 HOURS
     Route: 048
     Dates: start: 20210429
  31. RETINOL [Concomitant]
     Active Substance: RETINOL
     Indication: PROPHYLAXIS
     Dosage: ONCE EVERY 24 HOURS
     Route: 048
     Dates: start: 20210429
  32. ZINC GLUCONATE [Concomitant]
     Active Substance: ZINC GLUCONATE
     Indication: PROPHYLAXIS
     Dosage: ONCE EVERY 24 HOURS
     Route: 048
     Dates: start: 20210429
  33. INDAPAMIDE. [Concomitant]
     Active Substance: INDAPAMIDE
     Indication: HYPERTENSION
     Dosage: UNK
     Dates: start: 2021
  34. IRON [Concomitant]
     Active Substance: IRON
     Indication: PROPHYLAXIS
     Dosage: ONCE EVERY 24 HOURS,
     Route: 048
     Dates: start: 20210429

REACTIONS (1)
  - Electrocardiogram QT prolonged [Not Recovered/Not Resolved]

NARRATIVE: CASE EVENT DATE: 20210414
